FAERS Safety Report 8521493-4 (Version None)
Quarter: 2012Q3

REPORT INFORMATION
  Report Type: 
  Country: None (occurrence: None)
  Receive Date: 20120719
  Receipt Date: 20120625
  Transmission Date: 20120928
  Serious: No
  Sender: FDA-Public Use
  Company Number: US-ASTRAZENECA-2012SE42958

PATIENT
  Age: 67 Year
  Sex: Female
  Weight: 127 kg

DRUGS (3)
  1. WARFARIN SODIUM [Concomitant]
  2. TOPROL-XL [Suspect]
     Route: 048
     Dates: start: 20120201
  3. TOPROL-XL [Suspect]
     Indication: HEART RATE IRREGULAR
     Route: 048
     Dates: start: 20110520

REACTIONS (10)
  - OFF LABEL USE [None]
  - DRUG INEFFECTIVE FOR UNAPPROVED INDICATION [None]
  - SOMNOLENCE [None]
  - MALAISE [None]
  - FATIGUE [None]
  - RASH GENERALISED [None]
  - ATRIAL FIBRILLATION [None]
  - COELIAC DISEASE [None]
  - WEIGHT INCREASED [None]
  - DERMATITIS [None]
